FAERS Safety Report 9030699 (Version 1)
Quarter: 2013Q1

REPORT INFORMATION
  Report Type: Spontaneous
  Country: US (occurrence: US)
  Receive Date: 20130123
  Receipt Date: 20130123
  Transmission Date: 20140127
  Serious: No
  Sender: FDA-Public Use
  Company Number: US-PFIZER INC-2013027147

PATIENT
  Age: 64 Year
  Sex: Male
  Weight: 105 kg

DRUGS (8)
  1. LYRICA [Suspect]
     Indication: NEURALGIA
     Dosage: 150 MG, DAILY
     Route: 048
  2. LYRICA [Suspect]
     Dosage: 150 MG, DAILY
     Dates: start: 2012
  3. LYRICA [Suspect]
     Dosage: 75 MG, UNK
  4. TAMSULOSIN [Concomitant]
     Indication: HYPERTENSION
     Dosage: UNK,DAILY
  5. LISINOPRIL [Concomitant]
     Indication: HYPERTENSION
     Dosage: 20 MG,DAILY
  6. CRESTOR [Concomitant]
     Indication: BLOOD CHOLESTEROL INCREASED
     Dosage: 5 MG, DAILY
  7. OMEPRAZOLE [Concomitant]
     Indication: GASTROOESOPHAGEAL REFLUX DISEASE
     Dosage: 20 MG,DAILY
  8. ACETYLSALICYLIC ACID [Concomitant]
     Indication: ISCHAEMIC HEART DISEASE PROPHYLAXIS
     Dosage: 81 MG, DAILY

REACTIONS (2)
  - Rash erythematous [Recovered/Resolved]
  - Pruritus [Recovered/Resolved]
